FAERS Safety Report 22609075 (Version 1)
Quarter: 2023Q2

REPORT INFORMATION
  Report Type: Spontaneous
  Country: CH (occurrence: CD)
  Receive Date: 20230616
  Receipt Date: 20230616
  Transmission Date: 20230721
  Serious: Yes (Death, Hospitalization, Other)
  Sender: FDA-Public Use
  Company Number: CH-STERISCIENCE B.V.-2023-ST-001465

PATIENT
  Age: 23 Year
  Sex: Female

DRUGS (7)
  1. MEROPENEM [Suspect]
     Active Substance: MEROPENEM
     Indication: Nosocomial infection
     Dosage: 2 GRAM, Q8H
     Route: 042
  2. RIFAMPIN [Concomitant]
     Active Substance: RIFAMPIN
     Indication: Meningitis tuberculous
     Dosage: UNK
     Route: 065
     Dates: start: 202102
  3. RIFAMPIN [Concomitant]
     Active Substance: RIFAMPIN
     Dosage: UNK
  4. ISONIAZID [Concomitant]
     Active Substance: ISONIAZID
     Indication: Meningitis tuberculous
     Dosage: UNK
     Route: 065
     Dates: start: 202102
  5. ISONIAZID [Concomitant]
     Active Substance: ISONIAZID
     Dosage: UNK
  6. PYRAZINAMIDE [Concomitant]
     Active Substance: PYRAZINAMIDE
     Indication: Meningitis tuberculous
     Dosage: UNK
     Route: 065
     Dates: start: 202102
  7. ETHAMBUTOL [Concomitant]
     Active Substance: ETHAMBUTOL HYDROCHLORIDE
     Indication: Meningitis tuberculous
     Dosage: UNK
     Route: 065
     Dates: start: 202102

REACTIONS (1)
  - Drug ineffective for unapproved indication [Fatal]
